FAERS Safety Report 12873875 (Version 1)
Quarter: 2016Q4

REPORT INFORMATION
  Report Type: Spontaneous
  Country: US (occurrence: US)
  Receive Date: 20161021
  Receipt Date: 20161021
  Transmission Date: 20170207
  Serious: No
  Sender: FDA-Public Use
  Company Number: US-ALLERGAN-1649358

PATIENT
  Sex: Male

DRUGS (1)
  1. LIPASE 3,000USP;AMYLASE 16,000USP;PROTEASE 10,000USP CAP [Suspect]
     Active Substance: AMYLASE\LIPASE\PROTEASE
     Indication: PRODUCT USED FOR UNKNOWN INDICATION
     Dosage: UNK, UNKNOWN
     Route: 065

REACTIONS (1)
  - Arthralgia [Unknown]
